FAERS Safety Report 23281661 (Version 1)
Quarter: 2023Q4

REPORT INFORMATION
  Report Type: Spontaneous
  Country: US (occurrence: US)
  Receive Date: 20231211
  Receipt Date: 20231211
  Transmission Date: 20240110
  Serious: No
  Sender: FDA-Public Use
  Company Number: US-AMGEN-USASP2023218081

PATIENT

DRUGS (1)
  1. OTEZLA [Suspect]
     Active Substance: APREMILAST
     Indication: Psoriasis
     Dosage: UNK
     Route: 048

REACTIONS (5)
  - Therapeutic product effect incomplete [Unknown]
  - Abdominal discomfort [Unknown]
  - Oral pain [Unknown]
  - Lip swelling [Unknown]
  - Lip blister [Unknown]
